FAERS Safety Report 19993251 (Version 2)
Quarter: 2021Q4

REPORT INFORMATION
  Report Type: Report from Study
  Country: US (occurrence: US)
  Receive Date: 20211026
  Receipt Date: 20211105
  Transmission Date: 20220303
  Serious: Yes (Other)
  Sender: FDA-Public Use
  Company Number: US-TAIHO ONCOLOGY INC-EU-2021-03336

PATIENT
  Age: 76 Year
  Sex: Male
  Weight: 63.106 kg

DRUGS (1)
  1. LONSURF [Suspect]
     Active Substance: TIPIRACIL HYDROCHLORIDE\TRIFLURIDINE
     Indication: Colon cancer
     Dosage: CURRENT CYCLE UNKNOWN
     Route: 048
     Dates: start: 20210831

REACTIONS (4)
  - Hepatic neoplasm [Unknown]
  - Back pain [Unknown]
  - Musculoskeletal chest pain [Unknown]
  - Cytopenia [Unknown]
